FAERS Safety Report 9922442 (Version 2)
Quarter: 2014Q1

REPORT INFORMATION
  Report Type: Spontaneous
  Country: JP (occurrence: JP)
  Receive Date: 20140225
  Receipt Date: 20140304
  Transmission Date: 20141002
  Serious: No
  Sender: FDA-Public Use
  Company Number: JP-PFIZER INC-2014049928

PATIENT
  Age: 44 Year
  Sex: Male

DRUGS (2)
  1. INLYTA [Suspect]
     Indication: RENAL CELL CARCINOMA
     Dosage: 10 MG, DAILY
     Route: 048
     Dates: start: 201303
  2. MIYA BM [Concomitant]
     Indication: GASTROINTESTINAL DISORDER
     Dosage: UNK

REACTIONS (3)
  - Disease progression [Recovering/Resolving]
  - Renal cell carcinoma [Recovering/Resolving]
  - Diarrhoea [Recovered/Resolved]
